FAERS Safety Report 5817875-1 (Version None)
Quarter: 2008Q3

REPORT INFORMATION
  Report Type: 
  Country: None (occurrence: None)
  Receive Date: 20080722
  Receipt Date: 20070627
  Transmission Date: 20090109
  Serious: No
  Sender: FDA-Public Use
  Company Number: US-BAYER-US-2007-023915

PATIENT
  Age: 46 Year
  Sex: Female
  Weight: 88 kg

DRUGS (4)
  1. MAGNEVIST [Suspect]
     Indication: NUCLEAR MAGNETIC RESONANCE IMAGING BRAIN
     Dosage: UNIT DOSE: 18 ML
     Route: 042
     Dates: start: 20070625, end: 20070625
  2. HYDROCHLOROTHIAZIDE [Concomitant]
  3. AMITRIPTYLINE HCL [Concomitant]
  4. ^MIABINM^ [Concomitant]

REACTIONS (2)
  - CHEST DISCOMFORT [None]
  - FLUSHING [None]
